FAERS Safety Report 20227018 (Version 1)
Quarter: 2021Q4

REPORT INFORMATION
  Report Type: Spontaneous
  Country: FR (occurrence: FR)
  Receive Date: 20211224
  Receipt Date: 20211224
  Transmission Date: 20220303
  Serious: Yes (Hospitalization)
  Sender: FDA-Public Use
  Company Number: None

PATIENT
  Age: 47 Year
  Sex: Male

DRUGS (9)
  1. ALPRAZOLAM [Suspect]
     Active Substance: ALPRAZOLAM
     Indication: Product used for unknown indication
     Dosage: 0.5 MG, QD
     Route: 048
     Dates: start: 2019, end: 20190812
  2. BROMAZEPAM [Suspect]
     Active Substance: BROMAZEPAM
     Indication: Product used for unknown indication
     Dosage: UNK (NOTION OF TWO BOXES PER MONTH PRESCRIBED)
     Route: 048
     Dates: start: 2021, end: 20211109
  3. METHADONE HYDROCHLORIDE [Suspect]
     Active Substance: METHADONE HYDROCHLORIDE
     Indication: Product used for unknown indication
     Dosage: 100MG MATIN - 60MG SOIR
     Route: 048
  4. BROMAZEPAM [Suspect]
     Active Substance: BROMAZEPAM
     Indication: Product used for unknown indication
     Dosage: 6 MG, QD
     Route: 048
     Dates: start: 2019, end: 20190812
  5. SUBUTEX [Suspect]
     Active Substance: BUPRENORPHINE HYDROCHLORIDE
     Indication: Product used for unknown indication
     Dosage: 16 MG, QD
     Route: 048
     Dates: start: 2019, end: 20190812
  6. CYAMEMAZINE [Suspect]
     Active Substance: CYAMEMAZINE
     Indication: Insomnia
     Dosage: 50 MG, QD (50 MG, DAILY (25 MG X 2 PER DAY); DECLARES TAKING 3 TABLETS IN THE EVENING TO SLEEP (UP T
     Route: 065
     Dates: start: 2021
  7. TRANXENE [Suspect]
     Active Substance: CLORAZEPATE DIPOTASSIUM
     Indication: Product used for unknown indication
     Dosage: UNK, (MAY TAKE 2 TABLETS PER DAY, NOT PRESCRIBED)
     Route: 048
     Dates: start: 2021, end: 20211109
  8. VALIUM [Suspect]
     Active Substance: DIAZEPAM
     Indication: Product used for unknown indication
     Dosage: 40 MG, QD (40 MG, DAILY (PRESCRIBED AT 10 MG X 4 PER DAY, MAY TAKE 8 TABLETS PER DAY)
     Route: 048
     Dates: start: 2021
  9. VALIUM [Suspect]
     Active Substance: DIAZEPAM
     Dosage: 60 MG, QD (WITH GRADUAL DECREASE IN DOSAGE)
     Route: 048

REACTIONS (2)
  - Intentional product misuse [Recovering/Resolving]
  - Drug abuse [Recovering/Resolving]

NARRATIVE: CASE EVENT DATE: 20190101
